FAERS Safety Report 6331894-0 (Version None)
Quarter: 2009Q3

REPORT INFORMATION
  Report Type: 
  Country: None (occurrence: None)
  Receive Date: 20090826
  Receipt Date: 20090810
  Transmission Date: 20100115
  Serious: Yes (Death)
  Sender: FDA-Public Use
  Company Number: DSU-2009-01662

PATIENT
  Sex: Male

DRUGS (4)
  1. BENICAR [Suspect]
     Indication: HYPERTENSION
     Dosage: TRANSPLACENTAL
     Route: 064
  2. WELLBUTRIN (BUPROPION HYDROCHLORIDE) (BUPROPION HYDROCHLORIDE) [Concomitant]
  3. PROZAC [Concomitant]
  4. PRENATAL VITAMINS (ASCORBIC ACID, BIOTAN, TOCOPHEROL MICOTINIC ACID, R [Concomitant]

REACTIONS (5)
  - CAESAREAN SECTION [None]
  - DEATH NEONATAL [None]
  - FOETAL DISTRESS SYNDROME [None]
  - MATERNAL DRUGS AFFECTING FOETUS [None]
  - NEONATAL DISORDER [None]
